FAERS Safety Report 7555360-X (Version None)
Quarter: 2011Q2

REPORT INFORMATION
  Report Type: 
  Country: None (occurrence: None)
  Receive Date: 20110617
  Receipt Date: 20110608
  Transmission Date: 20111010
  Serious: Yes (Hospitalization)
  Sender: FDA-Public Use
  Company Number: US-ASTRAZENECA-2011SE35147

PATIENT

DRUGS (1)
  1. SEROQUEL [Suspect]
     Indication: SEDATION
     Route: 048

REACTIONS (2)
  - OFF LABEL USE [None]
  - MECHANICAL VENTILATION [None]
